APPROVED DRUG PRODUCT: METRONIDAZOLE IN PLASTIC CONTAINER
Active Ingredient: METRONIDAZOLE
Strength: 500MG/100ML
Dosage Form/Route: INJECTABLE;INJECTION
Application: A206191 | Product #001 | TE Code: AP
Applicant: INFORLIFE SA
Approved: Feb 25, 2019 | RLD: No | RS: Yes | Type: RX